FAERS Safety Report 21100634 (Version 1)
Quarter: 2022Q3

REPORT INFORMATION
  Report Type: Spontaneous
  Country: GB (occurrence: GB)
  Receive Date: 20220719
  Receipt Date: 20220719
  Transmission Date: 20221027
  Serious: No
  Sender: FDA-Public Use
  Company Number: None

PATIENT
  Sex: Female

DRUGS (2)
  1. PAXLOVID [Suspect]
     Active Substance: NIRMATRELVIR\RITONAVIR
     Indication: COVID-19 treatment
     Dosage: UNK
     Dates: start: 20220709, end: 20220709
  2. ADALIMUMAB [Concomitant]
     Active Substance: ADALIMUMAB
     Indication: Adverse drug reaction
     Dosage: UNK

REACTIONS (6)
  - Tinnitus [Recovering/Resolving]
  - Insomnia [Unknown]
  - Agitation [Unknown]
  - Taste disorder [Recovering/Resolving]
  - Paraesthesia [Unknown]
  - Incorrect product administration duration [Unknown]

NARRATIVE: CASE EVENT DATE: 20220701
